FAERS Safety Report 24231853 (Version 1)
Quarter: 2024Q3

REPORT INFORMATION
  Report Type: Spontaneous
  Country: US (occurrence: US)
  Receive Date: 20240821
  Receipt Date: 20240821
  Transmission Date: 20241017
  Serious: Yes (Other)
  Sender: AMGEN
  Company Number: US-AMGEN-USASP2024163090

PATIENT
  Age: 71 Year
  Sex: Female

DRUGS (2)
  1. TEPROTUMUMAB [Suspect]
     Active Substance: TEPROTUMUMAB
     Indication: Graves^ disease
     Dosage: UNK
     Route: 065
  2. VERAPAMIL [Concomitant]
     Active Substance: VERAPAMIL HYDROCHLORIDE
     Indication: Cerebral vasoconstriction
     Dosage: 60 MILLIGRAM, BID

REACTIONS (1)
  - Reversible cerebral vasoconstriction syndrome [Unknown]
